FAERS Safety Report 5627309-8 (Version None)
Quarter: 2008Q1

REPORT INFORMATION
  Report Type: 
  Country: None (occurrence: None)
  Receive Date: 20080215
  Receipt Date: 20080208
  Transmission Date: 20080703
  Serious: Yes (Hospitalization)
  Sender: FDA-Public Use
  Company Number: JP-BAYER-200810137BYL

PATIENT
  Age: 60 Year
  Sex: Male
  Weight: 66 kg

DRUGS (4)
  1. AVELOX [Suspect]
     Indication: SINUSITIS
     Dosage: TOTAL DAILY DOSE: 400 MG  UNIT DOSE: 400 MG
     Route: 048
     Dates: start: 20071029, end: 20071107
  2. RULID [Concomitant]
     Indication: SINUSITIS
     Dosage: TOTAL DAILY DOSE: 450 MG
     Route: 048
     Dates: start: 20071013
  3. RULID [Concomitant]
     Route: 048
     Dates: start: 20071109
  4. GENINAX [Concomitant]
     Indication: SINUSITIS
     Dosage: TOTAL DAILY DOSE: 400 MG
     Route: 048
     Dates: start: 20071006

REACTIONS (7)
  - EYELID OEDEMA [None]
  - LIP EROSION [None]
  - ORAL MUCOSA EROSION [None]
  - PHARYNGEAL INFLAMMATION [None]
  - PYREXIA [None]
  - STEVENS-JOHNSON SYNDROME [None]
  - VULVAR EROSION [None]
